FAERS Safety Report 6923883-X (Version None)
Quarter: 2010Q3

REPORT INFORMATION
  Report Type: 
  Country: None (occurrence: None)
  Receive Date: 20100813
  Receipt Date: 20100504
  Transmission Date: 20110219
  Serious: No
  Sender: FDA-Public Use
  Company Number: US-BRISTOL-MYERS SQUIBB COMPANY-15023658

PATIENT
  Sex: Male

DRUGS (1)
  1. REYATAZ [Suspect]
     Dosage: FOR 5 YEARS OR LARGE

REACTIONS (3)
  - MASS [None]
  - PAIN [None]
  - PAIN IN EXTREMITY [None]
